FAERS Safety Report 5254222-0 (Version None)
Quarter: 2007Q1

REPORT INFORMATION
  Report Type: 
  Country: None (occurrence: None)
  Receive Date: 20070302
  Receipt Date: 20070301
  Transmission Date: 20070707
  Serious: Yes (Death)
  Sender: FDA-Public Use
  Company Number: US-GLAXOSMITHKLINE-A0637109A

PATIENT
  Age: 81 Year
  Sex: Male

DRUGS (6)
  1. COREG [Suspect]
     Dosage: 6.25MG TWICE PER DAY
     Route: 048
     Dates: start: 20061001
  2. ASPIRIN [Concomitant]
     Dosage: 81MG TWICE PER DAY
  3. ISOSORBIDE MONONITRATE [Concomitant]
     Dosage: 30MG PER DAY
     Route: 048
  4. FUROSEMIDE [Concomitant]
     Dosage: 40MG TWICE PER DAY
     Route: 048
  5. LISINOPRIL [Concomitant]
     Dosage: 5MG PER DAY
     Route: 048
  6. LOVASTATIN [Concomitant]
     Dosage: 80MG AT NIGHT
     Route: 048

REACTIONS (1)
  - DEATH [None]
